FAERS Safety Report 8088927-3 (Version None)
Quarter: 2012Q1

REPORT INFORMATION
  Report Type: 
  Country: None (occurrence: None)
  Receive Date: 20120128
  Receipt Date: 20110622
  Transmission Date: 20120608
  Serious: Yes (Other)
  Sender: FDA-Public Use
  Company Number: US-ABBOTT-11P-163-0734718-00

PATIENT
  Sex: Female
  Weight: 62.198 kg

DRUGS (8)
  1. ZOCOR [Concomitant]
     Indication: BLOOD CHOLESTEROL INCREASED
     Dates: start: 19910101
  2. LOPRESSOR [Concomitant]
     Indication: HYPERTENSION
  3. HUMIRA [Suspect]
     Indication: PSORIATIC ARTHROPATHY
     Dates: start: 20110406, end: 20110618
  4. LOPRESSOR [Concomitant]
     Indication: PALPITATIONS
     Dosage: 20MG IN AM AND 12.5 MG AT NIGHT
     Dates: start: 19910101
  5. PROZAC [Concomitant]
     Indication: OBSESSIVE-COMPULSIVE DISORDER
     Dates: start: 19980101
  6. HYDROCODONE BITARTRATE [Concomitant]
     Indication: PAIN
  7. HUMIRA [Suspect]
     Indication: RHEUMATOID ARTHRITIS
  8. DITROPAN [Concomitant]
     Indication: PRODUCT USED FOR UNKNOWN INDICATION
     Dates: start: 20110301

REACTIONS (8)
  - LOCALISED INFECTION [None]
  - VULVOVAGINAL SWELLING [None]
  - RASH MACULAR [None]
  - URINARY TRACT INFECTION [None]
  - DRUG INEFFECTIVE [None]
  - SECRETION DISCHARGE [None]
  - STAPHYLOCOCCAL INFECTION [None]
  - SKIN DISCOLOURATION [None]
